FAERS Safety Report 9096756 (Version 1)
Quarter: 2013Q1

REPORT INFORMATION
  Report Type: Spontaneous
  Country: BR (occurrence: BR)
  Receive Date: 20130211
  Receipt Date: 20130211
  Transmission Date: 20140127
  Serious: Yes (Other)
  Sender: FDA-Public Use
  Company Number: BR-PFIZER INC-2013054142

PATIENT
  Age: 38 Year
  Sex: Female

DRUGS (3)
  1. EFEXOR XR [Suspect]
     Dosage: 75 MG (ONE CAPSULE), 1X/DAY
     Route: 048
     Dates: start: 20121206
  2. OLCADIL [Concomitant]
     Dosage: ONE TABLET, ONCE DAILY
  3. QUETROS [Concomitant]
     Dosage: ONE TABLET, ONCE DAILY

REACTIONS (2)
  - Nasal disorder [Unknown]
  - Bedridden [Not Recovered/Not Resolved]
